FAERS Safety Report 8983159 (Version 1)
Quarter: 2012Q4

REPORT INFORMATION
  Report Type: 
  Country: AU (occurrence: AU)
  Receive Date: 20121224
  Receipt Date: 20121224
  Transmission Date: 20130627
  Serious: Yes (Death, Hospitalization)
  Sender: FDA-Public Use
  Company Number: PHHY2012AU118753

PATIENT
  Sex: Female

DRUGS (2)
  1. SANDOSTATIN LAR [Suspect]
     Indication: CARCINOID SYNDROME
     Dosage: 30 mg, UNK
     Route: 030
     Dates: start: 20120910
  2. SANDOSTATIN LAR [Suspect]
     Dosage: 30 mg, UNK
     Route: 030
     Dates: start: 20121214

REACTIONS (4)
  - Death [Fatal]
  - Malaise [Unknown]
  - Pain [Unknown]
  - Diarrhoea [Unknown]
